FAERS Safety Report 7647666-0 (Version None)
Quarter: 2011Q3

REPORT INFORMATION
  Report Type: 
  Country: None (occurrence: None)
  Receive Date: 20110801
  Receipt Date: 20110801
  Transmission Date: 20111222
  Serious: Yes (Hospitalization)
  Sender: FDA-Public Use
  Company Number: None

PATIENT
  Age: 52 Year
  Sex: Male
  Weight: 72.574 kg

DRUGS (1)
  1. STAMINA-RX (OTC) [Suspect]
     Dosage: TWO PILLS
     Route: 048
     Dates: start: 20110720, end: 20110720

REACTIONS (10)
  - VOMITING [None]
  - COLD SWEAT [None]
  - TREMOR [None]
  - NERVOUSNESS [None]
  - NAUSEA [None]
  - ABDOMINAL PAIN UPPER [None]
  - PALLOR [None]
  - DIARRHOEA [None]
  - HEART RATE INCREASED [None]
  - PRODUCT QUALITY ISSUE [None]
